FAERS Safety Report 8658031 (Version 2)
Quarter: 2012Q4

REPORT INFORMATION
  Report Type: 
  Country: US (occurrence: US)
  Receive Date: 20120710
  Receipt Date: 20121030
  Transmission Date: 20130627
  Serious: Yes (Hospitalization)
  Sender: FDA-Public Use
  Company Number: US-BAYER-2012-067468

PATIENT
  Age: 37 Year
  Sex: Female
  Weight: 75 kg

DRUGS (7)
  1. YAZ [Suspect]
     Indication: HYPOMENORRHEA
     Dosage: UNK
     Dates: start: 200908, end: 200910
  2. VITAMIN B12 [CYANOCOBALAMIN] [Concomitant]
     Indication: WEIGHT LOSS
     Dosage: UNK
  3. CHORIONIC GONADOTROPIN [Concomitant]
     Indication: WEIGHT LOSS
     Dosage: UNK
  4. VITAMIN C [Concomitant]
     Dosage: UNK
  5. MAGNESIUM [Concomitant]
     Dosage: UNK
  6. KLOR-CON [Concomitant]
     Dosage: 10 mEq, extended release, UNK
  7. PHENTERMINE HYDROCHLORIDE [Concomitant]
     Dosage: 15 mg, UNK

REACTIONS (2)
  - Transient ischaemic attack [None]
  - Cerebrovascular accident [None]
